FAERS Safety Report 8974747 (Version 2)
Quarter: 2013Q1

REPORT INFORMATION
  Report Type: Report from Study
  Country: US (occurrence: US)
  Receive Date: 20121220
  Receipt Date: 20130109
  Transmission Date: 20140127
  Serious: No
  Sender: FDA-Public Use
  Company Number: US-VERTEX PHARMACEUTICALS INC.-2012-026387

PATIENT
  Age: 55 Year
  Sex: Male
  Weight: 117 kg

DRUGS (5)
  1. VX-950 (TELAPREVIR) [Suspect]
     Indication: HEPATITIS C
     Dosage: 750 MG, TID
     Route: 048
  2. PEGASYS [Suspect]
     Indication: HEPATITIS C
     Dosage: 180 ?G, UNK
  3. RIBAVIRIN [Suspect]
     Indication: HEPATITIS C
     Dosage: 200 MG, UNK
  4. NAPROXEN [Concomitant]
     Dosage: 375 MG, UNK
  5. BYSTOLIC [Concomitant]
     Dosage: 10 MG, UNK

REACTIONS (3)
  - Myalgia [Unknown]
  - Fatigue [Unknown]
  - Nausea [Unknown]
